FAERS Safety Report 9818797 (Version 2)
Quarter: 2014Q1

REPORT INFORMATION
  Report Type: Spontaneous
  Country: TW (occurrence: TW)
  Receive Date: 20140115
  Receipt Date: 20140117
  Transmission Date: 20141002
  Serious: Yes (Death)
  Sender: FDA-Public Use
  Company Number: TW-CELGENEUS-153-21880-14011425

PATIENT
  Age: 80 Year
  Sex: Female

DRUGS (1)
  1. REVLIMID [Suspect]
     Indication: PLASMA CELL MYELOMA
     Route: 048

REACTIONS (2)
  - Plasma cell myeloma [Fatal]
  - Sepsis [Fatal]
